FAERS Safety Report 4808494-4 (Version None)
Quarter: 2005Q4

REPORT INFORMATION
  Report Type: 
  Country: None (occurrence: None)
  Receive Date: 20051021
  Receipt Date: 20020415
  Transmission Date: 20060501
  Serious: No
  Sender: FDA-Public Use
  Company Number: US_020483725

PATIENT
  Age: 18 Year
  Sex: Female

DRUGS (4)
  1. OLANZAPINE [Suspect]
     Dosage: 5 MG/DAY
     Dates: start: 20020306, end: 20020408
  2. NITRAZEPAM [Concomitant]
  3. NELBON (NITRAZEPAM) [Concomitant]
  4. BIPERIDEN HYDROCHLORIDE TAB [Concomitant]

REACTIONS (1)
  - PLATELET COUNT DECREASED [None]
